FAERS Safety Report 19089006 (Version 2)
Quarter: 2021Q2

REPORT INFORMATION
  Report Type: Report from Study
  Country: KE (occurrence: KE)
  Receive Date: 20210403
  Receipt Date: 20210511
  Transmission Date: 20210717
  Serious: Yes (Hospitalization, Other)
  Sender: FDA-Public Use
  Company Number: KE-CIPLA LTD.-2021KE02439

PATIENT

DRUGS (3)
  1. ABACAVIR/LAMIVUDINE [Suspect]
     Active Substance: ABACAVIR\LAMIVUDINE
     Indication: HIV INFECTION
     Dosage: 1.5 DOSAGE FORM, BID (90MG/45MG)
     Route: 048
     Dates: start: 20161130, end: 20181004
  2. LOPINAVIR/RITONAVIR [Suspect]
     Active Substance: LOPINAVIR\RITONAVIR
     Indication: HIV INFECTION
     Dosage: 3 DOSAGE FORM, BID (120MG/30MG)
     Route: 048
     Dates: start: 20161130, end: 20181004
  3. BACTRIM [Concomitant]
     Active Substance: SULFAMETHOXAZOLE\TRIMETHOPRIM
     Indication: PRODUCT USED FOR UNKNOWN INDICATION
     Dosage: UNK
     Route: 065
     Dates: start: 20161101

REACTIONS (1)
  - Malnutrition [Recovering/Resolving]

NARRATIVE: CASE EVENT DATE: 20180505
